FAERS Safety Report 21272605 (Version 1)
Quarter: 2022Q3

REPORT INFORMATION
  Report Type: Spontaneous
  Country: US (occurrence: US)
  Receive Date: 20220830
  Receipt Date: 20220830
  Transmission Date: 20221027
  Serious: Yes (Other)
  Sender: FDA-Public Use
  Company Number: US-BEIGENE KOREA-BGN-2022-008717

PATIENT

DRUGS (2)
  1. BRUKINSA [Suspect]
     Active Substance: ZANUBRUTINIB
     Indication: Mantle cell lymphoma
     Dosage: 4 CAPSULES (80 MILLIGRAM) DAILY
     Route: 048
  2. BRUKINSA [Suspect]
     Active Substance: ZANUBRUTINIB
     Dosage: 2 CAPSULES (80 MILLIGRAM) DAILY
     Route: 048

REACTIONS (3)
  - Faeces discoloured [Unknown]
  - Faecal volume increased [Unknown]
  - Therapy change [Unknown]
